FAERS Safety Report 9703020 (Version 2)
Quarter: 2014Q1

REPORT INFORMATION
  Report Type: Spontaneous
  Country: JP (occurrence: JP)
  Receive Date: 20131122
  Receipt Date: 20140226
  Transmission Date: 20141002
  Serious: Yes (Hospitalization, Other)
  Sender: FDA-Public Use
  Company Number: JP-009507513-1311JPN007544

PATIENT
  Age: 70 Year
  Sex: Female
  Weight: 36 kg

DRUGS (17)
  1. FOSAMAC TABLETS-5 [Suspect]
     Indication: OSTEOPOROSIS
     Dosage: 35 MG, QD
     Route: 048
     Dates: end: 20120403
  2. RHEUMATREX [Suspect]
     Indication: RHEUMATOID ARTHRITIS
     Dosage: DAILY DOSE UNKNOWN
     Route: 048
     Dates: start: 200612, end: 201102
  3. PREDNISOLONE [Concomitant]
     Dosage: DAILY DOSE UNKNOWN, FORMULATION: POR
     Route: 048
     Dates: start: 1997
  4. RINDERON (BETAMETHASONE) [Concomitant]
     Dosage: DAILY DOSE UNKNOWN, FORMULATION: POR
     Route: 048
     Dates: start: 1997
  5. RIMATIL [Concomitant]
     Route: 048
  6. FASTIC [Concomitant]
     Route: 048
  7. CELESTAMINE (BETAMETHASONE (+) DEXCHLORPHENIRAMINE MALEATE) [Concomitant]
     Route: 048
  8. CELTECT [Concomitant]
     Route: 048
  9. MUCODYNE [Concomitant]
     Route: 048
  10. AMLODIN OD [Concomitant]
     Route: 048
  11. LIVALO [Concomitant]
     Route: 048
  12. MYSLEE [Concomitant]
     Route: 048
  13. TAKEPRON [Concomitant]
     Route: 048
  14. ALOSENN (SENNA) [Concomitant]
     Route: 048
  15. CEFZON [Concomitant]
     Route: 048
  16. VOLTAREN [Concomitant]
     Route: 048
  17. SELBEX [Concomitant]
     Route: 048

REACTIONS (4)
  - Cellulitis [Recovered/Resolved]
  - Osteonecrosis of jaw [Unknown]
  - Osteomyelitis [Unknown]
  - Cataract [Unknown]
